FAERS Safety Report 15980648 (Version 1)
Quarter: 2019Q1

REPORT INFORMATION
  Report Type: Spontaneous
  Country: US (occurrence: US)
  Receive Date: 20190219
  Receipt Date: 20190219
  Transmission Date: 20190418
  Serious: Yes (Other)
  Sender: FDA-Public Use
  Company Number: US-PFIZER INC-2018536984

PATIENT
  Age: 36 Year
  Sex: Female
  Weight: 130 kg

DRUGS (4)
  1. ZYVOX [Suspect]
     Active Substance: LINEZOLID
     Indication: SEPSIS
  2. ANCEF [ATAZANAVIR SULFATE] [Concomitant]
     Active Substance: ATAZANAVIR SULFATE
     Indication: STAPHYLOCOCCAL INFECTION
  3. ZYVOX [Suspect]
     Active Substance: LINEZOLID
     Indication: ENDOCARDITIS
     Dosage: 600 MG, 2X/DAY [EVERY 12 HOURS]
     Route: 048
     Dates: start: 20181228
  4. ANCEF [ATAZANAVIR SULFATE] [Concomitant]
     Active Substance: ATAZANAVIR SULFATE
     Indication: ENDOCARDITIS
     Dosage: 2000 MG, UNK
     Dates: start: 20181224

REACTIONS (3)
  - Product dose omission [Unknown]
  - Product prescribing issue [Unknown]
  - Cardiac infection [Unknown]

NARRATIVE: CASE EVENT DATE: 20181228
